FAERS Safety Report 17597134 (Version 1)
Quarter: 2020Q1

REPORT INFORMATION
  Report Type: Spontaneous
  Country: IN (occurrence: IN)
  Receive Date: 20200330
  Receipt Date: 20200330
  Transmission Date: 20200409
  Serious: No
  Sender: FDA-Public Use
  Company Number: IN-LUPIN LIMITED-2020-00977

PATIENT
  Age: 40 Year
  Sex: Female

DRUGS (1)
  1. TONACT FILM C.TABS 10 MG [Suspect]
     Active Substance: ATORVASTATIN CALCIUM
     Indication: LIPIDS ABNORMAL
     Dosage: 1 DOSAGE FORM, QD (AFTER DINNER)
     Route: 048
     Dates: start: 20200220

REACTIONS (2)
  - Asthenia [Not Recovered/Not Resolved]
  - Nausea [Not Recovered/Not Resolved]

NARRATIVE: CASE EVENT DATE: 20200221
